FAERS Safety Report 5565896-9 (Version None)
Quarter: 2007Q4

REPORT INFORMATION
  Report Type: 
  Country: None (occurrence: None)
  Receive Date: 20071213
  Receipt Date: 20071030
  Transmission Date: 20080405
  Serious: Yes (Death, Hospitalization)
  Sender: FDA-Public Use
  Company Number: 2007S1000298

PATIENT
  Sex: Female

DRUGS (2)
  1. ACITRETIN [Suspect]
     Indication: PSORIASIS
     Dosage: 25 MG; QD; PO; PO
     Route: 048
     Dates: end: 20060101
  2. ACITRETIN [Suspect]
     Indication: PSORIASIS
     Dosage: 25 MG; QD; PO; PO
     Route: 048

REACTIONS (3)
  - BACTERAEMIA [None]
  - CARDIAC FAILURE [None]
  - MYOCARDIAL ISCHAEMIA [None]
